FAERS Safety Report 10674676 (Version 1)
Quarter: 2014Q4

REPORT INFORMATION
  Report Type: Report from Study
  Country: DE (occurrence: DE)
  Receive Date: 20141224
  Receipt Date: 20141224
  Transmission Date: 20150529
  Serious: Yes (Other)
  Sender: FDA-Public Use
  Company Number: DE-GE HEALTHCARE MEDICAL DIAGNOSTICS-VISP-PR-1412S-0552

PATIENT
  Age: 68 Year
  Sex: Female
  Weight: 73 kg

DRUGS (4)
  1. VISIPAQUE [Suspect]
     Active Substance: IODIXANOL
     Indication: DECREASED APPETITE
  2. VISIPAQUE [Suspect]
     Active Substance: IODIXANOL
     Indication: DIAGNOSTIC PROCEDURE
  3. VISIPAQUE [Suspect]
     Active Substance: IODIXANOL
     Indication: BREAST CANCER
     Route: 042
     Dates: start: 20141217, end: 20141217
  4. VISIPAQUE [Suspect]
     Active Substance: IODIXANOL
     Indication: WEIGHT DECREASED

REACTIONS (2)
  - Rash pustular [Recovered/Resolved]
  - Pruritus [Recovered/Resolved]

NARRATIVE: CASE EVENT DATE: 20141217
